FAERS Safety Report 8971328 (Version 1)
Quarter: 2012Q4

REPORT INFORMATION
  Report Type: 
  Country: FR (occurrence: FR)
  Receive Date: 20121217
  Receipt Date: 20121217
  Transmission Date: 20130627
  Serious: Yes (Life-Threatening, Hospitalization, Other)
  Sender: FDA-Public Use
  Company Number: PHHY2011FR112581

PATIENT
  Age: 28 Year
  Sex: Female

DRUGS (6)
  1. TEGRETOL [Suspect]
     Indication: CONVULSION
     Dosage: UNK UKN, UNK
     Route: 048
  2. TEGRETOL [Suspect]
     Dosage: 10 DF (Single intake), one box
     Route: 048
     Dates: start: 20090930, end: 20090930
  3. RIVOTRIL [Suspect]
     Indication: CONVULSION
     Dosage: UNK UKN, UNK
  4. RIVOTRIL [Suspect]
     Dosage: 10 DF (Single intake), one box
     Route: 048
     Dates: start: 20090930, end: 20090930
  5. DI-ANTALVIC [Suspect]
     Dosage: UNK UKN, UNK
     Route: 048
  6. DI-ANTALVIC [Suspect]
     Dosage: 10 DF (Single intake), one box
     Dates: start: 20090930, end: 20090930

REACTIONS (22)
  - Hepatitis fulminant [Recovered/Resolved with Sequelae]
  - Nervous system disorder [Recovering/Resolving]
  - Renal tubular necrosis [Recovering/Resolving]
  - Haemorrhagic ascites [Recovering/Resolving]
  - Ascites [Recovering/Resolving]
  - Pleural effusion [Recovering/Resolving]
  - Pyrexia [Recovering/Resolving]
  - Leukocytosis [Recovering/Resolving]
  - Streptococcus test positive [Unknown]
  - Hepatic failure [Recovering/Resolving]
  - Coma [Recovering/Resolving]
  - Somnolence [Recovering/Resolving]
  - Renal failure acute [Recovering/Resolving]
  - Haematuria [Recovering/Resolving]
  - Anuria [Recovering/Resolving]
  - Intentional overdose [Unknown]
  - International normalised ratio increased [Recovered/Resolved]
  - Tachycardia [Recovering/Resolving]
  - Blood pressure systolic increased [Recovered/Resolved]
  - Blood pressure diastolic decreased [Recovered/Resolved]
  - Staphylococcal bacteraemia [Unknown]
  - Anaemia [Recovering/Resolving]
